FAERS Safety Report 10945321 (Version 1)
Quarter: 2015Q1

REPORT INFORMATION
  Report Type: Spontaneous
  Country: US (occurrence: US)
  Receive Date: 20150323
  Receipt Date: 20150323
  Transmission Date: 20150721
  Serious: Yes (Other)
  Sender: FDA-Public Use
  Company Number: US-ELI_LILLY_AND_COMPANY-US201503007568

PATIENT
  Sex: Female

DRUGS (1)
  1. PROZAC [Suspect]
     Active Substance: FLUOXETINE HYDROCHLORIDE
     Indication: DEPRESSION
     Dosage: 40 MG, QD
     Route: 065

REACTIONS (6)
  - Amniotic cavity infection [Unknown]
  - Premature labour [Unknown]
  - Premature rupture of membranes [Unknown]
  - Uterine tenderness [Unknown]
  - Injury [Unknown]
  - Maternal exposure during pregnancy [Recovered/Resolved]
